FAERS Safety Report 12780369 (Version 1)
Quarter: 2016Q3

REPORT INFORMATION
  Report Type: Spontaneous
  Country: US (occurrence: US)
  Receive Date: 20160923
  Receipt Date: 20160923
  Transmission Date: 20161109
  Serious: Yes (Other)
  Sender: FDA-Public Use
  Company Number: None

PATIENT
  Age: 52 Year
  Sex: Female
  Weight: 46.8 kg

DRUGS (4)
  1. CIPROFLOXACIN HCL 500 MG TABS [Suspect]
     Active Substance: CIPROFLOXACIN HYDROCHLORIDE
     Indication: SINUSITIS
     Route: 048
     Dates: start: 20160914, end: 20160914
  2. ALPRAZOLAM. [Concomitant]
     Active Substance: ALPRAZOLAM
  3. PSYLLIUM [Concomitant]
     Active Substance: PLANTAGO SEED
  4. PROBIOTICS [Concomitant]
     Active Substance: PROBIOTICS NOS

REACTIONS (8)
  - Arthralgia [None]
  - Agitation [None]
  - Tendon pain [None]
  - Restlessness [None]
  - Nightmare [None]
  - Depression [None]
  - Myalgia [None]
  - Arthropathy [None]

NARRATIVE: CASE EVENT DATE: 20160916
